FAERS Safety Report 22393677 (Version 9)
Quarter: 2024Q1

REPORT INFORMATION
  Report Type: Spontaneous
  Country: IN (occurrence: IN)
  Receive Date: 20230601
  Receipt Date: 20240129
  Transmission Date: 20240409
  Serious: Yes (Other)
  Sender: FDA-Public Use
  Company Number: IN-PFIZER INC-PV202200010793

PATIENT
  Age: 60 Year
  Sex: Female

DRUGS (12)
  1. PALBOCICLIB [Suspect]
     Active Substance: PALBOCICLIB
     Indication: Breast cancer metastatic
     Dosage: 125 MG, 1X/DAY
     Route: 048
     Dates: start: 20210802, end: 2021
  2. PALBOCICLIB [Suspect]
     Active Substance: PALBOCICLIB
     Dosage: 125 MG, 1X/DAY
     Route: 048
     Dates: start: 20210901
  3. PALBOCICLIB [Suspect]
     Active Substance: PALBOCICLIB
     Dosage: 125 MG, 1X/DAY
     Route: 048
     Dates: start: 202207
  4. PALBOCICLIB [Suspect]
     Active Substance: PALBOCICLIB
     Dosage: 100 MG, 1X/DAY
     Dates: start: 20221114, end: 20221205
  5. PALBOCICLIB [Suspect]
     Active Substance: PALBOCICLIB
     Dosage: 100 MG, 1X/DAY
     Dates: start: 20221217, end: 20230108
  6. PALBOCICLIB [Suspect]
     Active Substance: PALBOCICLIB
     Dosage: 125 MG, 1X/DAY (FOR 3 MONTH, 21 DAYS 1 WEEK OFF)
     Route: 048
  7. PALBOCICLIB [Suspect]
     Active Substance: PALBOCICLIB
     Dosage: 100 MG, 1X/DAY (3 WEEKS THEN 1 WEEK OFF)
     Route: 048
  8. PALBOCICLIB [Suspect]
     Active Substance: PALBOCICLIB
     Dosage: 125MG PO OD X 3 WEEKS
     Route: 048
  9. FULVESTRANT [Concomitant]
     Active Substance: FULVESTRANT
     Indication: Breast cancer metastatic
     Dosage: 250 MG
     Route: 030
  10. FULVESTRANT [Concomitant]
     Active Substance: FULVESTRANT
     Dosage: 50MG DEEP IM  IN EACH BUTTOCK TODAY (500MG TOTAL)
     Route: 030
     Dates: start: 20240124, end: 20240124
  11. CALCIUM\CHOLECALCIFEROL [Concomitant]
     Active Substance: CALCIUM\CHOLECALCIFEROL
     Dosage: UNK
  12. PEGSTIM [Concomitant]
     Dosage: 6 MG, 1X/DAY
     Route: 058
     Dates: start: 20230916

REACTIONS (9)
  - Atrial fibrillation [Unknown]
  - Dental operation [Unknown]
  - Pallor [Not Recovered/Not Resolved]
  - Breast mass [Unknown]
  - Fatigue [Unknown]
  - Alopecia [Unknown]
  - Nodule [Unknown]
  - Asthenia [Unknown]
  - Dizziness [Not Recovered/Not Resolved]

NARRATIVE: CASE EVENT DATE: 20220805
